FAERS Safety Report 19401459 (Version 1)
Quarter: 2021Q2

REPORT INFORMATION
  Report Type: Spontaneous
  Country: US (occurrence: US)
  Receive Date: 20210611
  Receipt Date: 20210611
  Transmission Date: 20210717
  Serious: Yes (Other)
  Sender: FDA-Public Use
  Company Number: US-ASTRAZENECA-2021A506997

PATIENT
  Age: 19326 Day
  Sex: Female
  Weight: 108.9 kg

DRUGS (4)
  1. TRAMADOL. [Concomitant]
     Active Substance: TRAMADOL
     Route: 048
  2. LYNPARZA [Suspect]
     Active Substance: OLAPARIB
     Indication: DRUG HYPERSENSITIVITY
     Dosage: 500 MG 2 CAPSULES, EVERY 12 HOURS, 2 CAPSULES AT 8 AM AND 2 CAPSULES AT 8 PM
     Route: 048
     Dates: start: 2020
  3. DEXAMETHASONE. [Concomitant]
     Active Substance: DEXAMETHASONE
     Indication: CEREBRAL DISORDER
     Route: 065
  4. ATORVASTATIN [Concomitant]
     Active Substance: ATORVASTATIN
     Route: 065

REACTIONS (4)
  - Brain neoplasm malignant [Unknown]
  - Balance disorder [Unknown]
  - Ovarian cancer recurrent [Unknown]
  - Dizziness [Unknown]

NARRATIVE: CASE EVENT DATE: 20210604
